FAERS Safety Report 9482107 (Version 2)
Quarter: 2013Q3

REPORT INFORMATION
  Report Type: Report from Study
  Country: AU (occurrence: AU)
  Receive Date: 20130828
  Receipt Date: 20130828
  Transmission Date: 20140515
  Serious: Yes (Hospitalization)
  Sender: FDA-Public Use
  Company Number: PHHY2013AU090626

PATIENT
  Sex: Male

DRUGS (3)
  1. CLOZARIL [Suspect]
     Dosage: 150 MG, UNK
     Dates: start: 20011122
  2. CLOZARIL [Suspect]
     Dosage: UNK
  3. CLOPINE [Concomitant]
     Dosage: UNK UKN, UNK
     Dates: start: 201307

REACTIONS (3)
  - Mental disorder [Unknown]
  - Agitation [Unknown]
  - Malaise [Unknown]
